FAERS Safety Report 11012113 (Version 2)
Quarter: 2015Q2

REPORT INFORMATION
  Report Type: Spontaneous
  Country: US (occurrence: US)
  Receive Date: 20150410
  Receipt Date: 20150525
  Transmission Date: 20150821
  Serious: No
  Sender: FDA-Public Use
  Company Number: US-JNJFOC-20140211573

PATIENT
  Age: 40 Year
  Sex: Female
  Weight: 100 kg

DRUGS (12)
  1. HCTZ [Concomitant]
     Active Substance: HYDROCHLOROTHIAZIDE
     Route: 065
  2. REMICADE [Suspect]
     Active Substance: INFLIXIMAB
     Indication: PSORIATIC ARTHROPATHY
     Dosage: ALSO REPORTED AS 500 MG; FIRST INFLIXIMAB INFUSION
     Route: 042
     Dates: start: 20140207, end: 20140207
  3. BENADRYL [Concomitant]
     Active Substance: DIPHENHYDRAMINE HYDROCHLORIDE
     Indication: PREMEDICATION
     Route: 048
  4. LEFLUNOMIDE. [Concomitant]
     Active Substance: LEFLUNOMIDE
     Route: 065
  5. ASPIRIN. [Concomitant]
     Active Substance: ASPIRIN
     Route: 065
  6. NAPROXEN. [Concomitant]
     Active Substance: NAPROXEN
     Indication: PREMEDICATION
     Route: 048
  7. TYLENOL [Concomitant]
     Active Substance: ACETAMINOPHEN
     Route: 065
  8. PREDNISONE. [Concomitant]
     Active Substance: PREDNISONE
     Dosage: AS DIRECTED
     Route: 065
  9. HYDROCODONE [Concomitant]
     Active Substance: HYDROCODONE
     Route: 065
  10. IBUPROFEN. [Concomitant]
     Active Substance: IBUPROFEN
     Route: 065
  11. SYNTHROID [Concomitant]
     Active Substance: LEVOTHYROXINE SODIUM
     Route: 065
  12. LISINOPRIL. [Concomitant]
     Active Substance: LISINOPRIL
     Dosage: 10 DAILY
     Route: 065

REACTIONS (7)
  - Abdominal pain lower [Recovered/Resolved]
  - Oropharyngeal pain [Recovered/Resolved]
  - Infusion related reaction [Recovered/Resolved]
  - Abdominal pain [Recovered/Resolved]
  - Dizziness [Recovered/Resolved]
  - Chest pain [Recovered/Resolved]
  - Rash [Recovered/Resolved]

NARRATIVE: CASE EVENT DATE: 20140207
